FAERS Safety Report 19548755 (Version 1)
Quarter: 2021Q3

REPORT INFORMATION
  Report Type: Spontaneous
  Country: PE (occurrence: PE)
  Receive Date: 20210714
  Receipt Date: 20210714
  Transmission Date: 20211014
  Serious: Yes (Life-Threatening)
  Sender: FDA-Public Use
  Company Number: PE-BAYER-2021-173158

PATIENT
  Age: 32 Year
  Sex: Male
  Weight: 80 kg

DRUGS (1)
  1. GADOVIST [Suspect]
     Active Substance: GADOBUTROL
     Indication: PARAESTHESIA
     Dosage: 8 ML, ONCE
     Route: 042
     Dates: start: 20210624, end: 20210624

REACTIONS (12)
  - Dyspnoea [Recovered/Resolved]
  - Erythema [Recovered/Resolved]
  - Visual impairment [Recovered/Resolved]
  - Hypoaesthesia oral [Recovered/Resolved]
  - Oxygen saturation decreased [Recovered/Resolved]
  - Skin reaction [Recovered/Resolved]
  - Burning sensation [Recovered/Resolved]
  - Eye irritation [Recovered/Resolved]
  - Pruritus [Recovered/Resolved]
  - Dizziness [Recovered/Resolved]
  - Swelling of eyelid [Recovered/Resolved]
  - Speech disorder [Recovered/Resolved]

NARRATIVE: CASE EVENT DATE: 20210624
